FAERS Safety Report 6839929-3 (Version None)
Quarter: 2010Q3

REPORT INFORMATION
  Report Type: 
  Country: None (occurrence: None)
  Receive Date: 20100709
  Receipt Date: 20100624
  Transmission Date: 20110219
  Serious: Yes (Hospitalization)
  Sender: FDA-Public Use
  Company Number: 2010002524

PATIENT
  Age: 79 Year
  Sex: Male

DRUGS (1)
  1. TARCEVA [Suspect]
     Dosage: (150 MG, QD), ORAL
     Route: 048
     Dates: start: 20100525, end: 20100617

REACTIONS (1)
  - PULMONARY EMBOLISM [None]
